FAERS Safety Report 12174903 (Version 1)
Quarter: 2016Q1

REPORT INFORMATION
  Report Type: Other
  Country: ES (occurrence: ES)
  Receive Date: 20160314
  Receipt Date: 20160314
  Transmission Date: 20160526
  Serious: Yes (Other)
  Sender: FDA-Public Use
  Company Number: ES-DEXPHARM-20160211

PATIENT
  Age: 33 Year
  Sex: Female

DRUGS (3)
  1. ACYCLOVIR. [Suspect]
     Active Substance: ACYCLOVIR
     Route: 017
  2. LEVETIRACETAM. [Suspect]
     Active Substance: LEVETIRACETAM
     Indication: GENERALISED TONIC-CLONIC SEIZURE
  3. CEFTRIAXONE. [Suspect]
     Active Substance: CEFTRIAXONE

REACTIONS (3)
  - Rash [Unknown]
  - Maternal exposure during pregnancy [Unknown]
  - Tooth discolouration [Unknown]
